FAERS Safety Report 19684377 (Version 1)
Quarter: 2021Q3

REPORT INFORMATION
  Report Type: Spontaneous
  Country: US (occurrence: US)
  Receive Date: 20210811
  Receipt Date: 20210811
  Transmission Date: 20211014
  Serious: Yes (Death, Other)
  Sender: FDA-Public Use
  Company Number: US-LUPIN PHARMACEUTICALS INC.-2021-15097

PATIENT
  Age: 63 Year
  Sex: Male

DRUGS (1)
  1. DECITABINE. [Suspect]
     Active Substance: DECITABINE
     Indication: NEOPLASM MALIGNANT
     Dosage: 0.1?0.2 MILLIGRAM/KILOGRAM
     Route: 058

REACTIONS (4)
  - Pyrexia [Fatal]
  - Sepsis [Fatal]
  - Neutropenia [Fatal]
  - Infection [Fatal]
